FAERS Safety Report 6681872-7 (Version None)
Quarter: 2010Q2

REPORT INFORMATION
  Report Type: 
  Country: None (occurrence: None)
  Receive Date: 20100412
  Receipt Date: 20100326
  Transmission Date: 20101027
  Serious: Yes (Life-Threatening)
  Sender: FDA-Public Use
  Company Number: 2010SCPR000338

PATIENT
  Age: 38 Year
  Sex: Female

DRUGS (5)
  1. IBUPROFEN [Suspect]
     Indication: INFLUENZA LIKE ILLNESS
     Dosage: 600 MG, 400 MG, BID
     Dates: start: 20060601, end: 20060801
  2. IBUPROFEN [Suspect]
     Indication: INFLUENZA LIKE ILLNESS
     Dosage: 600 MG, 400 MG, BID
     Dates: start: 20070301, end: 20070101
  3. ALPRAZOLAM [Concomitant]
  4. INTERFERON BETA-1A [Suspect]
  5. GLATIRAMER ACETATE [Concomitant]

REACTIONS (2)
  - HEPATIC FAILURE [None]
  - INFLUENZA LIKE ILLNESS [None]
